FAERS Safety Report 15527013 (Version 2)
Quarter: 2018Q4

REPORT INFORMATION
  Report Type: Spontaneous
  Country: US (occurrence: US)
  Receive Date: 20181018
  Receipt Date: 20181127
  Transmission Date: 20190205
  Serious: No
  Sender: FDA-Public Use
  Company Number: US-SA-2018SA288331

PATIENT
  Age: 82 Year
  Sex: Male
  Weight: 83.9 kg

DRUGS (8)
  1. DESOXIMETASONE. [Concomitant]
     Active Substance: DESOXIMETASONE
  2. DUPIXENT [Suspect]
     Active Substance: DUPILUMAB
     Indication: DERMATITIS ATOPIC
     Dosage: 300 MG, QOW
     Route: 058
     Dates: start: 20181009
  3. ONDANSETRON [Concomitant]
     Active Substance: ONDANSETRON
  4. DUPIXENT [Suspect]
     Active Substance: DUPILUMAB
     Indication: ECZEMA NUMMULAR
  5. BETAMETHASONE DIPROPIONATE. [Concomitant]
     Active Substance: BETAMETHASONE DIPROPIONATE
  6. SERTRALINE [Concomitant]
     Active Substance: SERTRALINE HYDROCHLORIDE
  7. HYDROXYZINE [Concomitant]
     Active Substance: HYDROXYZINE HYDROCHLORIDE
  8. MINOCYCLINE [Concomitant]
     Active Substance: MINOCYCLINE\MINOCYCLINE HYDROCHLORIDE
     Dosage: 100 MG, BID
     Dates: start: 201809

REACTIONS (7)
  - Nausea [Unknown]
  - Retching [Unknown]
  - Gait disturbance [Unknown]
  - Vomiting [Unknown]
  - Injection site pain [Unknown]
  - Diarrhoea [Unknown]
  - Oral herpes [Unknown]

NARRATIVE: CASE EVENT DATE: 201810
